FAERS Safety Report 23327047 (Version 1)
Quarter: 2023Q4

REPORT INFORMATION
  Report Type: Spontaneous
  Country: US (occurrence: None)
  Receive Date: 20231221
  Receipt Date: 20231221
  Transmission Date: 20240110
  Serious: Yes (Life-Threatening, Hospitalization, Disabling)
  Sender: FDA-Public Use
  Company Number: None

PATIENT
  Age: 42 Year
  Sex: Female
  Weight: 58.5 kg

DRUGS (1)
  1. INVEGA [Suspect]
     Active Substance: PALIPERIDONE

REACTIONS (6)
  - Dyspnoea [None]
  - Nocturnal dyspnoea [None]
  - Asphyxia [None]
  - Post procedural complication [None]
  - Thrombosis [None]
  - Restlessness [None]

NARRATIVE: CASE EVENT DATE: 20231221
